FAERS Safety Report 6493380-7 (Version None)
Quarter: 2009Q4

REPORT INFORMATION
  Report Type: 
  Country: None (occurrence: None)
  Receive Date: 20091214
  Receipt Date: 20091208
  Transmission Date: 20100525
  Serious: Yes (Other)
  Sender: FDA-Public Use
  Company Number: CHPA2009US23258

PATIENT
  Age: 73 Year
  Sex: Male
  Weight: 95.238 kg

DRUGS (4)
  1. VOLTAREN [Suspect]
     Indication: OSTEOARTHRITIS
     Dosage: 4 G, BID
     Route: 061
     Dates: start: 20091101, end: 20091101
  2. VOLTAREN [Suspect]
     Dosage: UNK, BID
     Route: 061
     Dates: start: 20091207, end: 20091207
  3. VOLTAREN [Suspect]
     Dosage: UNK, ONCE
     Route: 061
     Dates: start: 20091208, end: 20091208
  4. INSULIN [Concomitant]

REACTIONS (3)
  - BLOOD GLUCOSE INCREASED [None]
  - INSOMNIA [None]
  - PAIN [None]
